FAERS Safety Report 7528071-4 (Version None)
Quarter: 2011Q2

REPORT INFORMATION
  Report Type: 
  Country: None (occurrence: None)
  Receive Date: 20110607
  Receipt Date: 20110113
  Transmission Date: 20111010
  Serious: Yes (Other)
  Sender: FDA-Public Use
  Company Number: US-BAYER-201025754NA

PATIENT
  Age: 21 Year
  Sex: Female
  Weight: 56.689 kg

DRUGS (3)
  1. YAZ [Suspect]
     Indication: PRODUCT USED FOR UNKNOWN INDICATION
     Dosage: 1 DF, QD
     Route: 048
     Dates: start: 20061001, end: 20091201
  2. DEPO-PROVERA [Concomitant]
  3. EFFEXOR XR [Suspect]

REACTIONS (7)
  - GALLBLADDER DISORDER [None]
  - INJURY [None]
  - HEPATIC ENZYME INCREASED [None]
  - PAIN [None]
  - BILIARY DYSKINESIA [None]
  - ABDOMINAL PAIN UPPER [None]
  - CHOLECYSTITIS CHRONIC [None]
